FAERS Safety Report 5945033-9 (Version None)
Quarter: 2008Q4

REPORT INFORMATION
  Report Type: 
  Country: None (occurrence: None)
  Receive Date: 20081021
  Receipt Date: 20080115
  Transmission Date: 20090506
  Serious: Yes (Other)
  Sender: FDA-Public Use
  Company Number: US-WYE-H02139108

PATIENT
  Age: 62 Year
  Sex: Female

DRUGS (3)
  1. PREMARIN [Suspect]
     Indication: MENOPAUSE
     Dosage: 1 TABLET 1X PER  1 DAY, ORAL
     Route: 048
     Dates: start: 20020101, end: 20060830
  2. PREMARIN [Suspect]
     Indication: MENOPAUSE
     Dosage: ONE APPLICATION ^ONCE IN A WHILE^, VAGINAL
     Route: 067
     Dates: start: 20020101, end: 20060830
  3. INSULIN (INSULIN) [Concomitant]

REACTIONS (2)
  - BREAST CANCER [None]
  - EXPIRED DRUG ADMINISTERED [None]
